FAERS Safety Report 18291017 (Version 2)
Quarter: 2020Q3

REPORT INFORMATION
  Report Type: Spontaneous
  Country: US (occurrence: US)
  Receive Date: 20200922
  Receipt Date: 20200929
  Transmission Date: 20201103
  Serious: No
  Sender: FDA-Public Use
  Company Number: NVSC2020US250842

PATIENT
  Sex: Female
  Weight: 84.08 kg

DRUGS (4)
  1. LETROZOLE. [Suspect]
     Active Substance: LETROZOLE
     Indication: ENDOMETRIAL NEOPLASM
     Dosage: UNK
     Route: 065
  2. AFINITOR [Suspect]
     Active Substance: EVEROLIMUS
     Indication: ENDOMETRIAL NEOPLASM
     Dosage: 20 MG, QD
     Route: 048
  3. METAMUCIL [Concomitant]
     Active Substance: PLANTAGO SEED
     Indication: PRODUCT USED FOR UNKNOWN INDICATION
     Dosage: UNK
     Route: 065
  4. MAGNESIA [Concomitant]
     Active Substance: MAGNESIUM HYDROXIDE
     Indication: PRODUCT USED FOR UNKNOWN INDICATION
     Dosage: UNK
     Route: 065

REACTIONS (7)
  - Hiatus hernia [Unknown]
  - Abdominal discomfort [Unknown]
  - Vomiting [Not Recovered/Not Resolved]
  - Constipation [Unknown]
  - Product use in unapproved indication [Unknown]
  - Malaise [Unknown]
  - Reflux gastritis [Unknown]
